FAERS Safety Report 4787282-1 (Version None)
Quarter: 2005Q3

REPORT INFORMATION
  Report Type: 
  Country: None (occurrence: None)
  Receive Date: 20050926
  Receipt Date: 20050526
  Transmission Date: 20060218
  Serious: No
  Sender: FDA-Public Use
  Company Number: 214321

PATIENT
  Age: 34 Year
  Sex: Male

DRUGS (4)
  1. AVASTIN [Suspect]
     Indication: METASTATIC RENAL CELL CARCINOMA
     Dosage: 630 MG, Q2W, UNK
     Route: 065
     Dates: start: 20050421
  2. TARCEVA [Suspect]
     Indication: RENAL CELL CARCINOMA STAGE UNSPECIFIED
     Dosage: 150 MG, QD, UNK
     Route: 065
     Dates: start: 20050329, end: 20050505
  3. ALLEGRA [Concomitant]
  4. PEPCID [Concomitant]

REACTIONS (1)
  - BLOOD BILIRUBIN INCREASED [None]
